FAERS Safety Report 16405721 (Version 1)
Quarter: 2019Q2

REPORT INFORMATION
  Report Type: Spontaneous
  Country: PT (occurrence: PT)
  Receive Date: 20190607
  Receipt Date: 20190607
  Transmission Date: 20190711
  Serious: Yes (Disabling)
  Sender: FDA-Public Use
  Company Number: PT-GLAXOSMITHKLINE-PT2019101339

PATIENT
  Age: 53 Year
  Sex: Male

DRUGS (3)
  1. PANTOPRAZOLE [Concomitant]
     Active Substance: PANTOPRAZOLE
     Indication: DYSPEPSIA
     Dosage: 20 MG, QD
     Route: 048
  2. ATOVAQUONE. [Suspect]
     Active Substance: ATOVAQUONE
     Indication: ANTIFUNGAL PROPHYLAXIS
     Dosage: 1500 MG, UNK
     Route: 048
     Dates: start: 20181102, end: 20190521
  3. PREGABALIN. [Concomitant]
     Active Substance: PREGABALIN
     Indication: PARAESTHESIA
     Dosage: 50 MG, UNK
     Route: 048

REACTIONS (2)
  - Myalgia [Recovering/Resolving]
  - Discomfort [Recovering/Resolving]

NARRATIVE: CASE EVENT DATE: 20190301
